FAERS Safety Report 7541166-4 (Version None)
Quarter: 2011Q2

REPORT INFORMATION
  Report Type: 
  Country: None (occurrence: None)
  Receive Date: 20110610
  Receipt Date: 20110606
  Transmission Date: 20111010
  Serious: Yes (Hospitalization)
  Sender: FDA-Public Use
  Company Number: US-GILEAD-2011-0039299

PATIENT
  Sex: Female
  Weight: 50.848 kg

DRUGS (4)
  1. COUMADIN [Concomitant]
  2. LETAIRIS [Suspect]
     Indication: PULMONARY HYPERTENSION
     Route: 048
     Dates: start: 20110419
  3. PREDNISONE [Concomitant]
  4. LETAIRIS [Suspect]
     Indication: CARDIAC VALVE DISEASE

REACTIONS (2)
  - OXYGEN SATURATION DECREASED [None]
  - PYREXIA [None]
